FAERS Safety Report 8781381 (Version 1)
Quarter: 2012Q4

REPORT INFORMATION
  Report Type: 
  Country: US (occurrence: US)
  Receive Date: 20120913
  Receipt Date: 20120913
  Transmission Date: 20130627
  Serious: Yes (Other)
  Sender: FDA-Public Use
  Company Number: US-PFIZER INC-2012225488

PATIENT
  Age: 55 Year
  Sex: Female
  Weight: 63.49 kg

DRUGS (4)
  1. LYRICA [Suspect]
     Indication: COMPLEX REGIONAL PAIN SYNDROME
     Dosage: 75 mg, 2x/day
     Dates: start: 200909
  2. LYRICA [Suspect]
     Dosage: 75 mg, daily
     Dates: end: 2012
  3. WELLBUTRIN XL [Concomitant]
     Indication: DEPRESSION
     Dosage: 300 mg, daily
  4. ZETIA [Concomitant]
     Indication: BLOOD CHOLESTEROL ABNORMAL
     Dosage: 10 mg, daily

REACTIONS (3)
  - Gastric disorder [Not Recovered/Not Resolved]
  - Fluid retention [Unknown]
  - Flatulence [Not Recovered/Not Resolved]
